FAERS Safety Report 5420669-2 (Version None)
Quarter: 2007Q3

REPORT INFORMATION
  Report Type: 
  Country: None (occurrence: None)
  Receive Date: 20070816
  Receipt Date: 20070803
  Transmission Date: 20080115
  Serious: Yes (Death)
  Sender: FDA-Public Use
  Company Number: 6035173

PATIENT
  Age: 60 Year
  Sex: Female

DRUGS (10)
  1. GLUCOPHAGE [Suspect]
     Indication: DIABETES MELLITUS
     Dosage: 2550 MG (850 MG, 3 IN 1 D) PER OS
  2. NOVONORM (2 MG, TABLET) (REPAGLINIDE) [Suspect]
     Indication: DIABETES MELLITUS
     Dosage: 12 MG (2 MG, 3 IN 2D); 6 MG (2 MG, 3 IN 1 D)
     Route: 048
     Dates: start: 20070602
  3. NOVONORM (2 MG, TABLET) (REPAGLINIDE) [Suspect]
     Indication: DIABETES MELLITUS
     Dosage: 12 MG (2 MG, 3 IN 2D); 6 MG (2 MG, 3 IN 1 D)
     Route: 048
     Dates: start: 20070612
  4. LEXOTAN (BROMAZEPAM) [Concomitant]
  5. BROMAZEPAM (BROMAZEPAM) [Concomitant]
  6. TRAFLOXAL (OFLOXACIN) [Concomitant]
  7. GANCICLOVIR [Concomitant]
  8. ASPIRIN [Concomitant]
  9. ZOCOR [Concomitant]
  10. RAMIPRIL [Concomitant]

REACTIONS (1)
  - DEATH [None]
